FAERS Safety Report 9970294 (Version 1)
Quarter: 2014Q1

REPORT INFORMATION
  Report Type: Spontaneous
  Country: US (occurrence: None)
  Receive Date: 20140127
  Receipt Date: 20140127
  Transmission Date: 20141002
  Serious: Yes (Hospitalization)
  Sender: FDA-Public Use
  Company Number: 1191157

PATIENT
  Age: 10 Year
  Sex: Male

DRUGS (3)
  1. ALTEPLASE (ALTEPLASE) [Suspect]
     Indication: PERIPHERAL ARTERY THROMBOSIS
  2. HEPARIN (HEPARIN SODIUM) [Suspect]
     Indication: ANTICOAGULANT THERAPY
     Dosage: INTRAVENOUS (NOT OTHERWISE SPECIFIED)
     Route: 042
  3. HEPARIN SODIUM (HEPARIN SODIUM) [Suspect]
     Indication: ANTICOAGULANT THERAPY

REACTIONS (2)
  - Atrial thrombosis [None]
  - Pulmonary venous thrombosis [None]
